FAERS Safety Report 12946193 (Version 2)
Quarter: 2018Q2

REPORT INFORMATION
  Report Type: Spontaneous
  Country: GB (occurrence: GB)
  Receive Date: 20161116
  Receipt Date: 20180530
  Transmission Date: 20180711
  Serious: Yes (Hospitalization)
  Sender: FDA-Public Use
  Company Number: GB-ACCORD-045544

PATIENT
  Age: 70 Year
  Sex: Female

DRUGS (9)
  1. RAMIPRIL. [Concomitant]
     Active Substance: RAMIPRIL
  2. AMLODIPINE [Concomitant]
     Active Substance: AMLODIPINE BESYLATE
  3. CITALOPRAM [Concomitant]
     Active Substance: CITALOPRAM HYDROBROMIDE
  4. CALCIUM FOLINATE/FOLINIC ACID/SODIUM FOLINATE [Concomitant]
     Indication: GASTROINTESTINAL CARCINOMA
  5. INDAPAMIDE/INDAPAMIDE HEMIHYDRATE [Concomitant]
  6. SIMVASTATIN. [Concomitant]
     Active Substance: SIMVASTATIN
  7. OXALIPLATIN. [Concomitant]
     Active Substance: OXALIPLATIN
     Indication: GASTROINTESTINAL CARCINOMA
  8. FLUOROURACIL. [Suspect]
     Active Substance: FLUOROURACIL
     Indication: GASTROINTESTINAL CARCINOMA
     Route: 042
  9. ISOSORBIDE/ISOSORBIDE DINITRATE/ISOSORBIDE MONONITRATE [Concomitant]

REACTIONS (1)
  - Acute myocardial infarction [Recovering/Resolving]
